FAERS Safety Report 9997523 (Version 8)
Quarter: 2015Q2

REPORT INFORMATION
  Report Type: Spontaneous
  Country: US (occurrence: US)
  Receive Date: 20140311
  Receipt Date: 20150524
  Transmission Date: 20150821
  Serious: Yes (Hospitalization, Disabling, Other)
  Sender: FDA-Public Use
  Company Number: US-UCBSA-112949

PATIENT
  Age: 67 Year
  Sex: Male
  Weight: 65 kg

DRUGS (9)
  1. KEPPRA [Suspect]
     Active Substance: LEVETIRACETAM
     Dosage: 1000 MG, 2X/DAY (BID)
  2. VIMPAT [Suspect]
     Active Substance: LACOSAMIDE
     Indication: GENERALISED TONIC-CLONIC SEIZURE
     Dosage: 150 MG, ONCE DAILY (QD)
     Dates: start: 20140124, end: 201403
  3. VIMPAT [Suspect]
     Active Substance: LACOSAMIDE
     Dosage: 150 MG, 2X/DAY (BID)
     Dates: start: 201403
  4. KEPPRA [Suspect]
     Active Substance: LEVETIRACETAM
     Dosage: 1500 MG, 2X/DAY (BID)
  5. CALCIUM [Concomitant]
     Active Substance: CALCIUM
     Indication: OSTEOPOROSIS
     Dosage: DAILY
  6. DILANTIN [Concomitant]
     Active Substance: PHENYTOIN
     Indication: COMPLEX PARTIAL SEIZURES
     Dosage: 400 MG, ONCE DAILY (QD)
     Route: 048
     Dates: start: 1963
  7. VIMPAT [Suspect]
     Active Substance: LACOSAMIDE
     Indication: PARTIAL SEIZURES WITH SECONDARY GENERALISATION
     Dosage: 150 MG, 2X/DAY (BID)
     Dates: start: 2012
  8. KEPPRA [Suspect]
     Active Substance: LEVETIRACETAM
     Indication: PARTIAL SEIZURES WITH SECONDARY GENERALISATION
     Dosage: 750 MG/3.5 DAILY
     Dates: start: 2004
  9. DILANTIN [Concomitant]
     Active Substance: PHENYTOIN
     Dosage: 300 MG QOD

REACTIONS (14)
  - Generalised tonic-clonic seizure [Recovered/Resolved]
  - Physical assault [Recovered/Resolved]
  - Confusional state [Recovering/Resolving]
  - Delusion [Recovered/Resolved]
  - Tension [Recovering/Resolving]
  - Hallucination [Recovering/Resolving]
  - Vocal cord paralysis [Not Recovered/Not Resolved]
  - Laryngeal injury [Not Recovered/Not Resolved]
  - Complex partial seizures [Unknown]
  - Seizure [Not Recovered/Not Resolved]
  - Anger [Recovering/Resolving]
  - Laryngospasm [Recovered/Resolved]
  - Intentional product use issue [Unknown]
  - Drug ineffective [Unknown]

NARRATIVE: CASE EVENT DATE: 2006
